FAERS Safety Report 7457339-5 (Version None)
Quarter: 2011Q2

REPORT INFORMATION
  Report Type: 
  Country: None (occurrence: None)
  Receive Date: 20110504
  Receipt Date: 20100915
  Transmission Date: 20111010
  Serious: No
  Sender: FDA-Public Use
  Company Number: US-KINGPHARMUSA00001-K201001153

PATIENT
  Age: 60 Year
  Sex: Female

DRUGS (7)
  1. AVINZA [Suspect]
     Indication: PAIN
     Dosage: 60 MG, QAM
     Route: 048
     Dates: start: 20080101
  2. PLAQUENIL [Concomitant]
     Indication: SYSTEMIC LUPUS ERYTHEMATOSUS
  3. AVINZA [Suspect]
     Dosage: 60 MG, QAM
     Route: 048
  4. AVINZA [Suspect]
     Dosage: 75 MG, QAM
     Route: 048
     Dates: start: 20100401, end: 20100401
  5. AVINZA [Suspect]
     Dosage: 75 MG, QAM
     Route: 048
  6. AVINZA [Suspect]
     Dosage: 60 MG, QAM
     Route: 048
     Dates: start: 20100101
  7. OXYCODONE [Concomitant]
     Indication: BREAKTHROUGH PAIN
     Dosage: 5-10 MG/2-3 DAILY PRN
     Route: 048

REACTIONS (4)
  - BREAKTHROUGH PAIN [None]
  - MEMORY IMPAIRMENT [None]
  - DRUG DIVERSION [None]
  - INTENTIONAL DRUG MISUSE [None]
